FAERS Safety Report 11373195 (Version 1)
Quarter: 2015Q3

REPORT INFORMATION
  Report Type: Spontaneous
  Country: US (occurrence: US)
  Receive Date: 20150811
  Receipt Date: 20150811
  Transmission Date: 20151125
  Serious: Yes (Other)
  Sender: FDA-Public Use
  Company Number: US-ELI_LILLY_AND_COMPANY-US201207008024

PATIENT
  Age: 39 Year
  Sex: Male

DRUGS (3)
  1. PROSTAGLANDIN E1 [Concomitant]
     Active Substance: ALPROSTADIL
     Dosage: 0.1 ML, UNK
     Route: 011
  2. VIAGRA [Concomitant]
     Active Substance: SILDENAFIL CITRATE
  3. CIALIS [Suspect]
     Active Substance: TADALAFIL
     Indication: ERECTILE DYSFUNCTION
     Dosage: 20 MG, UNK
     Dates: start: 201201

REACTIONS (1)
  - Priapism [Recovered/Resolved]
